FAERS Safety Report 8155779-2 (Version None)
Quarter: 2012Q1

REPORT INFORMATION
  Report Type: 
  Country: None (occurrence: None)
  Receive Date: 20120222
  Receipt Date: 20120216
  Transmission Date: 20120608
  Serious: No
  Sender: FDA-Public Use
  Company Number: US-JNJFOC-20120209165

PATIENT
  Age: 16 Year
  Sex: Male

DRUGS (4)
  1. REMICADE [Suspect]
     Indication: CROHN'S DISEASE
     Route: 042
     Dates: start: 20110701
  2. TRETINOIN [Concomitant]
     Indication: ACNE
     Route: 065
  3. PROTOPIC [Concomitant]
     Indication: ANORECTAL DISORDER
     Route: 065
  4. CLINDAMYCIN [Concomitant]
     Indication: ACNE
     Route: 065

REACTIONS (1)
  - HERPES VIRUS INFECTION [None]
